FAERS Safety Report 4647538-X (Version None)
Quarter: 2005Q2

REPORT INFORMATION
  Report Type: 
  Country: None (occurrence: None)
  Receive Date: 20050428
  Receipt Date: 20050114
  Transmission Date: 20051028
  Serious: Yes (Hospitalization)
  Sender: FDA-Public Use
  Company Number: JP-MERCK-0501USA02750

PATIENT
  Age: 13 Year
  Sex: Female

DRUGS (12)
  1. ELSPAR [Suspect]
     Indication: ACUTE LYMPHOCYTIC LEUKAEMIA
     Route: 042
     Dates: start: 19880201
  2. ELSPAR [Suspect]
     Route: 042
     Dates: start: 19880614
  3. VINDESINE [Concomitant]
     Route: 065
     Dates: start: 19880201
  4. ACLARUBICIN [Concomitant]
     Route: 065
     Dates: start: 19880201
  5. CYCLOPHOSPHAMIDE [Concomitant]
     Route: 065
     Dates: start: 19880201
  6. PREDNISOLONE [Concomitant]
     Route: 065
     Dates: start: 19880201
  7. PREDNISOLONE [Concomitant]
     Route: 048
     Dates: start: 19880614
  8. DAUNORUBICIN [Concomitant]
     Route: 042
     Dates: start: 19880614
  9. VINCRISTINE SULFATE [Concomitant]
     Route: 042
     Dates: start: 19880614
  10. MERCAPTOPURINE [Concomitant]
     Route: 048
     Dates: start: 19880614
  11. MERCAPTOPURINE [Concomitant]
     Route: 065
     Dates: start: 19880201
  12. CYTARABINE [Concomitant]
     Route: 065
     Dates: start: 19880201

REACTIONS (6)
  - ANTITHROMBIN III DECREASED [None]
  - BACK PAIN [None]
  - BLOOD FIBRINOGEN DECREASED [None]
  - CEREBRAL ARTERY EMBOLISM [None]
  - HYPERGLYCAEMIA [None]
  - PLASMINOGEN DECREASED [None]
